FAERS Safety Report 5094274-4 (Version None)
Quarter: 2006Q3

REPORT INFORMATION
  Report Type: 
  Country: None (occurrence: None)
  Receive Date: 20060831
  Receipt Date: 20060824
  Transmission Date: 20061208
  Serious: Yes (Other)
  Sender: FDA-Public Use
  Company Number: BE-GLAXOSMITHKLINE-B0436329A

PATIENT
  Age: 58 Year
  Sex: Female

DRUGS (1)
  1. ZINNAT [Suspect]
     Indication: PNEUMONIA
     Route: 048
     Dates: start: 20060724, end: 20060803

REACTIONS (5)
  - HEPATIC ENZYME INCREASED [None]
  - LIVER DISORDER [None]
  - MYALGIA [None]
  - PYREXIA [None]
  - SCLERAL DISCOLOURATION [None]
